FAERS Safety Report 24552924 (Version 3)
Quarter: 2024Q4

REPORT INFORMATION
  Report Type: Spontaneous
  Country: JP (occurrence: JP)
  Receive Date: 20241027
  Receipt Date: 20241114
  Transmission Date: 20250115
  Serious: Yes (Hospitalization)
  Sender: ABBVIE
  Company Number: JP-ABBVIE-5977596

PATIENT

DRUGS (1)
  1. RINVOQ [Suspect]
     Active Substance: UPADACITINIB
     Indication: Colitis ulcerative
     Dosage: FORM STRENGTH : 45 MILLIGRAM
     Route: 048
     Dates: start: 20241010, end: 20241024

REACTIONS (3)
  - Pyrexia [Recovered/Resolved]
  - Abdominal pain [Recovered/Resolved]
  - Full blood count decreased [Recovered/Resolved]

NARRATIVE: CASE EVENT DATE: 20241024
